FAERS Safety Report 7561034-1 (Version None)
Quarter: 2011Q2

REPORT INFORMATION
  Report Type: 
  Country: None (occurrence: None)
  Receive Date: 20110621
  Receipt Date: 20110612
  Transmission Date: 20111010
  Serious: Yes (Hospitalization)
  Sender: FDA-Public Use
  Company Number: US-UCBSA-035207

PATIENT
  Age: 48 Year
  Sex: Male
  Weight: 98 kg

DRUGS (4)
  1. LEVETIRACETAM [Suspect]
     Indication: EPILEPSY
     Route: 048
     Dates: start: 20100530
  2. DIVALPROEX SODIUM EXTENDED RELEASE [Concomitant]
  3. DILANTIN [Concomitant]
     Indication: GRAND MAL CONVULSION
     Route: 048
     Dates: start: 20020101
  4. DIVALPROEX SODIUM EXTENDED RELEASE [Concomitant]
     Indication: MIGRAINE
     Dates: start: 20020915

REACTIONS (1)
  - ANKLE FRACTURE [None]
